FAERS Safety Report 26066813 (Version 1)
Quarter: 2025Q4

REPORT INFORMATION
  Report Type: Spontaneous
  Country: US (occurrence: US)
  Receive Date: 20251119
  Receipt Date: 20251119
  Transmission Date: 20260119
  Serious: Yes (Death, Hospitalization)
  Sender: NOVO NORDISK
  Company Number: US-NOVOPROD-1564108

PATIENT
  Sex: Female

DRUGS (2)
  1. OZEMPIC [Suspect]
     Active Substance: SEMAGLUTIDE
     Indication: Product used for unknown indication
     Dosage: UNK
  2. INSULIN NOS [Concomitant]
     Active Substance: INSULIN NOS
     Indication: Product used for unknown indication
     Dosage: UNK

REACTIONS (1)
  - Acute respiratory failure [Fatal]
